FAERS Safety Report 9937161 (Version 2)
Quarter: 2014Q1

REPORT INFORMATION
  Report Type: Report from Study
  Country: KR (occurrence: KR)
  Receive Date: 20140301
  Receipt Date: 20140301
  Transmission Date: 20141002
  Serious: Yes (Hospitalization, Other)
  Sender: FDA-Public Use
  Company Number: KR-ASTRAZENECA-2014SE00354

PATIENT
  Age: 23879 Day
  Sex: Male
  Weight: 65 kg

DRUGS (4)
  1. BRILINTA [Suspect]
     Indication: ACUTE MYOCARDIAL INFARCTION
     Route: 048
     Dates: start: 20131203, end: 20131229
  2. LIPITOR [Concomitant]
     Indication: CARDIOVASCULAR DISORDER
     Route: 048
     Dates: start: 20131130
  3. DILATREND [Concomitant]
     Indication: CARDIOVASCULAR DISORDER
     Route: 048
     Dates: start: 20131201
  4. TRAJENTA [Concomitant]
     Indication: DIABETES MELLITUS
     Route: 048
     Dates: start: 20131130

REACTIONS (1)
  - Gastritis atrophic [Recovered/Resolved]
